FAERS Safety Report 6252039-1 (Version None)
Quarter: 2009Q2

REPORT INFORMATION
  Report Type: 
  Country: None (occurrence: None)
  Receive Date: 20090630
  Receipt Date: 20050501
  Transmission Date: 20091009
  Serious: Yes (Hospitalization)
  Sender: FDA-Public Use
  Company Number: US-ROCHE-638574

PATIENT
  Sex: Male

DRUGS (6)
  1. ENFUVIRTIDE [Suspect]
     Indication: HIV INFECTION
     Dosage: FREQ: QD
     Route: 065
     Dates: start: 20040123, end: 20050705
  2. NORVIR [Concomitant]
     Dates: start: 20041123, end: 20050111
  3. REYATAZ [Concomitant]
     Dosage: FREQ: QD
     Dates: start: 20050222, end: 20050705
  4. COMBIVIR [Concomitant]
     Dates: end: 20050705
  5. VIREAD [Concomitant]
     Dosage: FREQ: QD
     Dates: end: 20050705
  6. BACTRIM DS [Concomitant]
     Dosage: FREQ: QD
     Dates: start: 20000920, end: 20050705

REACTIONS (1)
  - DEHYDRATION [None]
